FAERS Safety Report 7420196-7 (Version None)
Quarter: 2011Q2

REPORT INFORMATION
  Report Type: 
  Country: None (occurrence: None)
  Receive Date: 20110407
  Receipt Date: 20110329
  Transmission Date: 20111010
  Serious: Yes (Death)
  Sender: FDA-Public Use
  Company Number: B0710874A

PATIENT
  Sex: 0

DRUGS (6)
  1. UNKNOWN (FORMULATION UNKNOWN) (UNKNOWN) [Suspect]
  2. MELPHALAN HYDROCHLORIDE [Suspect]
     Indication: NON-HODGKIN'S LYMPHOMA
  3. UNKNOWN (FORMULATION UNKNOWN) (UNKNOWN) [Suspect]
     Indication: NON-HODGKIN'S LYMPHOMA
  4. CYTARABINE [Suspect]
     Indication: NON-HODGKIN'S LYMPHOMA
  5. IBRITUMOMAB TIUXETAN (FORMULATION UNKNOWN) (IBRITUMOMAB TIUXETAN) [Suspect]
     Indication: NON-HODGKIN'S LYMPHOMA
  6. ETOPOSIDE [Suspect]
     Indication: NON-HODGKIN'S LYMPHOMA

REACTIONS (1)
  - INFECTION [None]
